FAERS Safety Report 10293639 (Version 1)
Quarter: 2014Q3

REPORT INFORMATION
  Report Type: Spontaneous
  Country: US (occurrence: US)
  Receive Date: 20140710
  Receipt Date: 20140710
  Transmission Date: 20150326
  Serious: No
  Sender: FDA-Public Use
  Company Number: US-PURDUE-USA-2013-0109804

PATIENT
  Age: 81 Year
  Sex: Female

DRUGS (1)
  1. BUTRANS [Suspect]
     Active Substance: BUPRENORPHINE
     Indication: NEUROPATHY PERIPHERAL
     Dosage: 5 MCG/HR, WEEKLY
     Route: 062
     Dates: start: 20131212

REACTIONS (5)
  - Memory impairment [Not Recovered/Not Resolved]
  - Oedema peripheral [Not Recovered/Not Resolved]
  - Constipation [Not Recovered/Not Resolved]
  - Urinary retention [Not Recovered/Not Resolved]
  - Somnolence [Not Recovered/Not Resolved]

NARRATIVE: CASE EVENT DATE: 201312
